FAERS Safety Report 15422509 (Version 2)
Quarter: 2018Q4

REPORT INFORMATION
  Report Type: Spontaneous
  Country: US (occurrence: US)
  Receive Date: 20180925
  Receipt Date: 20181026
  Transmission Date: 20190204
  Serious: No
  Sender: FDA-Public Use
  Company Number: US-ELI_LILLY_AND_COMPANY-US201809010140

PATIENT
  Sex: Female

DRUGS (2)
  1. TALTZ [Suspect]
     Active Substance: IXEKIZUMAB
     Indication: PRODUCT USED FOR UNKNOWN INDICATION
     Dosage: UNK UNK, UNKNOWN (INITIAL DOSE)
     Route: 058
     Dates: start: 20180907
  2. TALTZ [Suspect]
     Active Substance: IXEKIZUMAB
     Dosage: 80 MG, UNKNOWN (SECOND INJECTION)
     Route: 058
     Dates: start: 20180919

REACTIONS (8)
  - Injection site warmth [Unknown]
  - Injection site inflammation [Unknown]
  - Injection site bruising [Unknown]
  - Injection site discolouration [Not Recovered/Not Resolved]
  - Injection site pruritus [Unknown]
  - Injection site swelling [Unknown]
  - Injection site erythema [Unknown]
  - Injection site pain [Not Recovered/Not Resolved]

NARRATIVE: CASE EVENT DATE: 20180919
